FAERS Safety Report 10886409 (Version 1)
Quarter: 2015Q1

REPORT INFORMATION
  Report Type: Report from Study
  Country: JP (occurrence: JP)
  Receive Date: 20150304
  Receipt Date: 20150304
  Transmission Date: 20150721
  Serious: Yes (Hospitalization)
  Sender: FDA-Public Use
  Company Number: JP-EISAI MEDICAL RESEARCH-EC-2015-004570

PATIENT
  Age: 88 Year
  Sex: Male

DRUGS (4)
  1. FASTIC [Suspect]
     Active Substance: NATEGLINIDE
     Indication: PRODUCT USED FOR UNKNOWN INDICATION
     Dates: end: 20140819
  2. NU-LOTAN [Concomitant]
     Active Substance: LOSARTAN POTASSIUM
  3. NOVORAPID [Concomitant]
     Active Substance: INSULIN ASPART
  4. ARICEPT [Suspect]
     Active Substance: DONEPEZIL HYDROCHLORIDE
     Indication: DEMENTIA ALZHEIMER^S TYPE
     Route: 048
     Dates: start: 20100908, end: 20140819

REACTIONS (1)
  - Subdural haematoma [Recovered/Resolved]

NARRATIVE: CASE EVENT DATE: 20140819
